FAERS Safety Report 4503878-6 (Version None)
Quarter: 2004Q4

REPORT INFORMATION
  Report Type: 
  Country: None (occurrence: None)
  Receive Date: 20041115
  Receipt Date: 20041102
  Transmission Date: 20050328
  Serious: Yes (Other)
  Sender: FDA-Public Use
  Company Number: OMPQ-NO-0411S-1320

PATIENT
  Age: 3 Month
  Sex: Male
  Weight: 4.2 kg

DRUGS (6)
  1. OMNIPAQUE (IOHEXOL) [Suspect]
     Indication: SITUS AMBIGUOUS
     Dosage: 26.5 ML, SINGLE DOSE, I.V.
     Route: 042
     Dates: start: 20031003, end: 20031003
  2. LASIX [Concomitant]
  3. SPIRONOLACTONE [Concomitant]
  4. FLOMOXEF SODIUM (FLUMARIN) [Concomitant]
  5. VECURONIUM BROMIDE (MUSCULAX) [Concomitant]
  6. THIAMYLAL SODIUM (ISOZOL) [Concomitant]

REACTIONS (9)
  - BASE EXCESS [None]
  - BLOOD GLUCOSE INCREASED [None]
  - BLOOD PH DECREASED [None]
  - CONTRAST MEDIA REACTION [None]
  - DELAYED RECOVERY FROM ANAESTHESIA [None]
  - DEPRESSED LEVEL OF CONSCIOUSNESS [None]
  - LACRIMATION INCREASED [None]
  - LOSS OF CONSCIOUSNESS [None]
  - OVERDOSE [None]
